FAERS Safety Report 5275594-7 (Version None)
Quarter: 2007Q1

REPORT INFORMATION
  Report Type: 
  Country: None (occurrence: None)
  Receive Date: 20070326
  Receipt Date: 20070319
  Transmission Date: 20070707
  Serious: Yes (Life-Threatening)
  Sender: FDA-Public Use
  Company Number: PHHO2007US05024

PATIENT
  Age: 81 Year
  Sex: Female

DRUGS (6)
  1. LETROZOLE [Suspect]
     Indication: BREAST CANCER METASTATIC
     Dosage: 2.5 MG, QD
     Route: 048
     Dates: start: 20050829, end: 20070308
  2. VALSARTAN [Concomitant]
  3. METOPROLOL SUCCINATE [Concomitant]
  4. FRUSEMIDE [Concomitant]
  5. RISEDRONIC ACID [Concomitant]
  6. CALCIUM W/VITAMIN D NOS [Concomitant]

REACTIONS (1)
  - MYOCARDIAL INFARCTION [None]
